FAERS Safety Report 8113403-9 (Version None)
Quarter: 2012Q1

REPORT INFORMATION
  Report Type: 
  Country: None (occurrence: None)
  Receive Date: 20120203
  Receipt Date: 20120202
  Transmission Date: 20120608
  Serious: Yes (Congenital Anomaly, Other)
  Sender: FDA-Public Use
  Company Number: PHHY2011CN108977

PATIENT
  Sex: Female
  Weight: 3 kg

DRUGS (2)
  1. SEBIVO [Suspect]
     Indication: HEPATITIS B
     Dosage: 1 DF, DAILY MATERNAL DOSE
     Route: 064
  2. LAMIVUDINE [Concomitant]

REACTIONS (3)
  - ATRIAL SEPTAL DEFECT [None]
  - FOETAL EXPOSURE DURING PREGNANCY [None]
  - GASTRIC VOLVULUS [None]
